FAERS Safety Report 5377568-4 (Version None)
Quarter: 2007Q3

REPORT INFORMATION
  Report Type: 
  Country: None (occurrence: None)
  Receive Date: 20070703
  Receipt Date: 20070626
  Transmission Date: 20080115
  Serious: Yes (Hospitalization, Other)
  Sender: FDA-Public Use
  Company Number: DE-PFIZER INC-2007053594

PATIENT
  Age: 77 Year
  Sex: Female

DRUGS (1)
  1. BEXTRA [Suspect]

REACTIONS (6)
  - BODY TEMPERATURE INCREASED [None]
  - DYSPNOEA [None]
  - FACE OEDEMA [None]
  - MALAISE [None]
  - RASH [None]
  - STOMATITIS [None]
